FAERS Safety Report 8076345-3 (Version None)
Quarter: 2012Q1

REPORT INFORMATION
  Report Type: 
  Country: None (occurrence: None)
  Receive Date: 20120127
  Receipt Date: 20120119
  Transmission Date: 20120608
  Serious: Yes (Hospitalization, Other)
  Sender: FDA-Public Use
  Company Number: US-BAYER-2011-042318

PATIENT
  Age: 32 Year
  Sex: Female
  Weight: 68.027 kg

DRUGS (2)
  1. LEXAPRO [Concomitant]
     Indication: DEPRESSION
     Dosage: UNK UNK, QD
     Dates: start: 20030101, end: 20080101
  2. YASMIN [Suspect]
     Indication: PREMENSTRUAL SYNDROME
     Dosage: UNK
     Dates: start: 20050401, end: 20050601

REACTIONS (8)
  - PULMONARY EMBOLISM [None]
  - EMOTIONAL DISTRESS [None]
  - CHEST PAIN [None]
  - INJURY [None]
  - DEEP VEIN THROMBOSIS [None]
  - DYSPNOEA [None]
  - ANXIETY [None]
  - PAIN [None]
